FAERS Safety Report 9078862 (Version 2)
Quarter: 2013Q1

REPORT INFORMATION
  Report Type: Spontaneous
  Country: JP (occurrence: JP)
  Receive Date: 20130215
  Receipt Date: 20130318
  Transmission Date: 20140127
  Serious: Yes (Death, Hospitalization)
  Sender: FDA-Public Use
  Company Number: JP-ELI_LILLY_AND_COMPANY-JP201301007465

PATIENT
  Age: 62 Year
  Sex: Male
  Weight: 77.5 kg

DRUGS (11)
  1. ALIMTA [Suspect]
     Indication: NON-SMALL CELL LUNG CANCER
     Dosage: 1000 MG, UNK
     Route: 042
     Dates: start: 20121012, end: 20121220
  2. CARBOPLATIN [Concomitant]
     Indication: NON-SMALL CELL LUNG CANCER
     Dosage: 625 MG, UNK
     Route: 042
     Dates: start: 20121012, end: 20121220
  3. AVASTIN [Concomitant]
     Indication: NON-SMALL CELL LUNG CANCER
     Dosage: 1280 MG, UNK
     Route: 042
     Dates: start: 20121012, end: 20121220
  4. FOLIC ACID [Concomitant]
     Dosage: 1 G, QD
     Route: 048
     Dates: start: 20121006, end: 20121225
  5. HYDROXOCOBALAMIN [Concomitant]
     Dosage: 1 MG, UNK
     Route: 030
     Dates: start: 20121005, end: 20121126
  6. FENTAS [Concomitant]
     Indication: CANCER PAIN
     Dosage: 4 MG, UNK
     Route: 061
     Dates: start: 20021121, end: 20130101
  7. TAKEPRON [Concomitant]
     Indication: PROPHYLAXIS
     Dosage: 15 MG, UNK
     Route: 048
     Dates: start: 20121001, end: 20121225
  8. LYRICA [Concomitant]
     Indication: CANCER PAIN
     Dosage: 450 MG, UNK
     Route: 048
     Dates: start: 20121108, end: 20121225
  9. DECADRON                           /00016001/ [Concomitant]
     Indication: PROPHYLAXIS
     Dosage: 2 MG, UNK
     Route: 048
     Dates: start: 20121221, end: 20121225
  10. EMEND [Concomitant]
     Indication: PROPHYLAXIS
     Dosage: 125 MG, UNK
     Route: 048
     Dates: start: 20121220, end: 20121220
  11. EMEND [Concomitant]
     Dosage: 80 MG, UNK
     Route: 048
     Dates: start: 20121221, end: 20121221

REACTIONS (6)
  - Interstitial lung disease [Fatal]
  - Gastroenteritis [Recovering/Resolving]
  - Renal impairment [Not Recovered/Not Resolved]
  - Platelet count decreased [Not Recovered/Not Resolved]
  - Off label use [Unknown]
  - Dysgeusia [Unknown]
